FAERS Safety Report 19101845 (Version 1)
Quarter: 2021Q2

REPORT INFORMATION
  Report Type: Spontaneous
  Country: JP (occurrence: JP)
  Receive Date: 20210407
  Receipt Date: 20210407
  Transmission Date: 20210717
  Serious: Yes (Other)
  Sender: FDA-Public Use
  Company Number: JP-TOLMAR, INC.-21JP026373

PATIENT
  Age: 36 Year
  Sex: Female

DRUGS (4)
  1. RITODRINE HYDROCHLORIDE [Suspect]
     Active Substance: RITODRINE HYDROCHLORIDE
     Indication: TOCOLYSIS
     Route: 042
  2. BETAMETHASONE DIPROPIONATE. [Suspect]
     Active Substance: BETAMETHASONE DIPROPIONATE
     Indication: FOETAL GROWTH RESTRICTION
     Route: 065
  3. MAGNESIUM SULFATE. [Suspect]
     Active Substance: MAGNESIUM SULFATE
     Indication: TOCOLYSIS
     Route: 042
  4. NIFEDIPINE. [Suspect]
     Active Substance: NIFEDIPINE
     Indication: TOCOLYSIS
     Route: 048

REACTIONS (4)
  - Respiratory failure [Recovered/Resolved]
  - Maternal exposure during pregnancy [Recovered/Resolved]
  - Pulmonary oedema [Recovered/Resolved]
  - Premature labour [Recovered/Resolved]
